FAERS Safety Report 7464509-9 (Version None)
Quarter: 2011Q2

REPORT INFORMATION
  Report Type: 
  Country: None (occurrence: None)
  Receive Date: 20110509
  Receipt Date: 20110427
  Transmission Date: 20111010
  Serious: Yes (Hospitalization)
  Sender: FDA-Public Use
  Company Number: GB-RANBAXY-2011R1-44088

PATIENT
  Age: 21 Year
  Sex: Male

DRUGS (1)
  1. RISPERIDONE [Suspect]
     Indication: PRODUCT USED FOR UNKNOWN INDICATION
     Dosage: 1 MG, 2/1DAYS
     Route: 065

REACTIONS (5)
  - DRUG INEFFECTIVE [None]
  - HALLUCINATION, AUDITORY [None]
  - WEIGHT DECREASED [None]
  - PARANOIA [None]
  - IMPAIRED SELF-CARE [None]
